FAERS Safety Report 7141167-4 (Version None)
Quarter: 2010Q4

REPORT INFORMATION
  Report Type: 
  Country: None (occurrence: None)
  Receive Date: 20101122
  Receipt Date: 20101115
  Transmission Date: 20110411
  Serious: Yes (Hospitalization, Other)
  Sender: FDA-Public Use
  Company Number: 20108536

PATIENT
  Age: 38 Year
  Sex: Male
  Weight: 61 kg

DRUGS (1)
  1. BACLOFEN [Suspect]
     Indication: MUSCLE SPASTICITY
     Dosage: 30-40 MCG, DAILY, INTRATHECAL-SE
     Route: 037

REACTIONS (5)
  - CONDITION AGGRAVATED [None]
  - DEVICE DISLOCATION [None]
  - PROCEDURAL COMPLICATION [None]
  - TALIPES [None]
  - THERAPEUTIC RESPONSE DECREASED [None]
